FAERS Safety Report 6375585-9 (Version None)
Quarter: 2009Q3

REPORT INFORMATION
  Report Type: 
  Country: None (occurrence: None)
  Receive Date: 20090924
  Receipt Date: 20090917
  Transmission Date: 20100115
  Serious: Yes (Hospitalization)
  Sender: FDA-Public Use
  Company Number: PR-MERCK-0909USA03108

PATIENT
  Age: 74 Year
  Sex: Female

DRUGS (3)
  1. VYTORIN [Suspect]
     Indication: BLOOD CHOLESTEROL INCREASED
     Route: 048
     Dates: start: 20060901
  2. GLUCAGON [Concomitant]
     Route: 065
  3. DIOVAN [Concomitant]
     Route: 065

REACTIONS (1)
  - PERIPHERAL ARTERIAL OCCLUSIVE DISEASE [None]
